FAERS Safety Report 14680221 (Version 1)
Quarter: 2018Q1

REPORT INFORMATION
  Report Type: Spontaneous
  Country: AT (occurrence: AT)
  Receive Date: 20180326
  Receipt Date: 20180326
  Transmission Date: 20180509
  Serious: Yes (Hospitalization, Disabling, Other)
  Sender: FDA-Public Use
  Company Number: GXKR2007AT07351

PATIENT
  Age: 22 Year
  Sex: Female
  Weight: 97 kg

DRUGS (2)
  1. LAMOTRIGINE. [Concomitant]
     Active Substance: LAMOTRIGINE
     Indication: PARTIAL SEIZURES
     Route: 065
  2. VALPROIC ACID. [Suspect]
     Active Substance: VALPROIC ACID
     Indication: PARTIAL SEIZURES
     Dosage: 1500 MG, QD

REACTIONS (8)
  - Visual field defect [Recovering/Resolving]
  - Weight increased [Unknown]
  - Hyperprolactinaemia [Unknown]
  - Amenorrhoea [Unknown]
  - Retinogram abnormal [Recovering/Resolving]
  - Hyperammonaemia [Unknown]
  - Alopecia [Unknown]
  - Polycystic ovaries [Unknown]
